FAERS Safety Report 8196955-2 (Version None)
Quarter: 2012Q1

REPORT INFORMATION
  Report Type: 
  Country: None (occurrence: None)
  Receive Date: 20120309
  Receipt Date: 20120305
  Transmission Date: 20120608
  Serious: Yes (Death, Hospitalization, Other)
  Sender: FDA-Public Use
  Company Number: US-CELGENEUS-028-21660-12030420

PATIENT
  Sex: Female
  Weight: 74 kg

DRUGS (13)
  1. ABRAXANE [Suspect]
     Dosage: 400 MILLIGRAM
     Route: 041
     Dates: start: 20120222, end: 20120222
  2. HYDROMORPHONE HCL [Concomitant]
     Route: 065
  3. ZOMETA [Concomitant]
     Indication: BONE DISORDER
     Dosage: 4 MILLIGRAM
     Route: 041
     Dates: start: 20111101, end: 20120201
  4. POLYETHYLENE GLYCOL [Concomitant]
     Route: 065
  5. LACTULOSE [Concomitant]
     Route: 065
  6. GRAVOL TAB [Concomitant]
     Route: 065
  7. GLYCERIN [Concomitant]
     Route: 065
  8. NEUPOGEN [Concomitant]
     Route: 065
  9. ATARAX [Concomitant]
     Route: 065
  10. ANTIBIOTICS [Concomitant]
     Indication: ABDOMINAL PAIN
     Route: 065
     Dates: start: 20120201
  11. SENOKOT [Concomitant]
     Route: 065
  12. NYSTATIN [Concomitant]
     Route: 065
  13. MOI-STIR [Concomitant]
     Route: 065

REACTIONS (3)
  - NEUTROPENIA [None]
  - STEVENS-JOHNSON SYNDROME [None]
  - SEPSIS [None]
